FAERS Safety Report 17169412 (Version 1)
Quarter: 2019Q4

REPORT INFORMATION
  Report Type: Spontaneous
  Country: BR (occurrence: BR)
  Receive Date: 20191218
  Receipt Date: 20191218
  Transmission Date: 20200122
  Serious: Yes (Other)
  Sender: FDA-Public Use
  Company Number: NVSC2019BR071776

PATIENT
  Sex: Female

DRUGS (1)
  1. PREDNISONE. [Suspect]
     Active Substance: PREDNISONE
     Indication: HYPERADRENOCORTICISM
     Dosage: UNK
     Route: 065

REACTIONS (3)
  - Growth retardation [Not Recovered/Not Resolved]
  - Product use in unapproved indication [Unknown]
  - Cushing^s syndrome [Not Recovered/Not Resolved]
